FAERS Safety Report 9140455 (Version 2)
Quarter: 2013Q2

REPORT INFORMATION
  Report Type: Report from Study
  Country: ES (occurrence: ES)
  Receive Date: 20130305
  Receipt Date: 20130405
  Transmission Date: 20140414
  Serious: Yes (Death, Other)
  Sender: FDA-Public Use
  Company Number: ES-ROCHE-1196570

PATIENT
  Sex: 0

DRUGS (8)
  1. RITUXIMAB [Suspect]
     Indication: DIFFUSE LARGE B-CELL LYMPHOMA
     Route: 065
  2. ETOPOSIDE [Suspect]
     Indication: DIFFUSE LARGE B-CELL LYMPHOMA
     Route: 042
  3. VINCRISTINE [Suspect]
     Indication: DIFFUSE LARGE B-CELL LYMPHOMA
     Route: 042
  4. CYCLOPHOSPHAMIDE [Suspect]
     Indication: DIFFUSE LARGE B-CELL LYMPHOMA
     Route: 042
  5. DOXORUBICIN [Suspect]
     Indication: DIFFUSE LARGE B-CELL LYMPHOMA
     Route: 042
  6. PREDNISONE [Suspect]
     Indication: DIFFUSE LARGE B-CELL LYMPHOMA
     Route: 048
  7. G-CSF [Concomitant]
     Route: 065
  8. COTRIMOXAZOLE [Concomitant]
     Route: 065

REACTIONS (18)
  - Neutropenic sepsis [Fatal]
  - Acute myeloid leukaemia [Fatal]
  - Febrile neutropenia [Unknown]
  - Bacteraemia [Unknown]
  - Pneumonia [Unknown]
  - Gastrointestinal inflammation [Unknown]
  - Neutropenia [Unknown]
  - Thrombocytopenia [Unknown]
  - Anaemia [Unknown]
  - Nausea [Unknown]
  - Vomiting [Unknown]
  - Stomatitis [Unknown]
  - Diarrhoea [Unknown]
  - Neurotoxicity [Unknown]
  - Arrhythmia [Unknown]
  - Embolism venous [Unknown]
  - Constipation [Unknown]
  - Infection [Unknown]
